FAERS Safety Report 6026623-4 (Version None)
Quarter: 2008Q4

REPORT INFORMATION
  Report Type: 
  Country: None (occurrence: None)
  Receive Date: 20081231
  Receipt Date: 20081222
  Transmission Date: 20090506
  Serious: Yes (Hospitalization)
  Sender: FDA-Public Use
  Company Number: SPV1-2008-02561

PATIENT
  Age: 60 Year
  Sex: Female
  Weight: 83.4 kg

DRUGS (1)
  1. LIALDA [Suspect]
     Indication: COLITIS
     Dosage: 4.8 G, 1X/DAY:QD, ORAL
     Route: 048
     Dates: start: 20070607, end: 20070927

REACTIONS (3)
  - ANTINUCLEAR ANTIBODY POSITIVE [None]
  - HEADACHE [None]
  - PYREXIA [None]
